FAERS Safety Report 26197965 (Version 1)
Quarter: 2025Q4

REPORT INFORMATION
  Report Type: Spontaneous
  Country: US (occurrence: US)
  Receive Date: 20251224
  Receipt Date: 20251224
  Transmission Date: 20260117
  Serious: Yes (Death, Other)
  Sender: Kenvue
  Company Number: US-KENVUE-20251206986

PATIENT

DRUGS (3)
  1. ACETAMINOPHEN [Suspect]
     Active Substance: ACETAMINOPHEN
     Indication: Patent ductus arteriosus
     Route: 065
  2. IBUPROFEN [Suspect]
     Active Substance: IBUPROFEN
     Indication: Patent ductus arteriosus
     Route: 065
  3. INDOMETHACIN [Suspect]
     Active Substance: INDOMETHACIN
     Indication: Patent ductus arteriosus
     Route: 065

REACTIONS (20)
  - Sepsis neonatal [Fatal]
  - Septic shock [Fatal]
  - Group B streptococcus neonatal sepsis [Fatal]
  - Pneumonia escherichia [Fatal]
  - Necrotising enterocolitis neonatal [Fatal]
  - Neonatal respiratory failure [Fatal]
  - Neonatal respiratory distress syndrome [Fatal]
  - Acute respiratory failure [Fatal]
  - Respiratory failure [Fatal]
  - Pulmonary haemorrhage neonatal [Fatal]
  - Neonatal pulmonary hypertension [Fatal]
  - Cardiac arrest neonatal [Fatal]
  - Cardiopulmonary failure [Fatal]
  - Splenic infarction [Fatal]
  - Hepatic infarction [Fatal]
  - Posthaemorrhagic hydrocephalus [Fatal]
  - Bronchopulmonary dysplasia [Fatal]
  - Pulmonary hypertension [Fatal]
  - Nervous system disorder [Fatal]
  - Off label use [Fatal]
